FAERS Safety Report 11103394 (Version 1)
Quarter: 2015Q2

REPORT INFORMATION
  Report Type: Spontaneous
  Country: GB (occurrence: GB)
  Receive Date: 20150511
  Receipt Date: 20150511
  Transmission Date: 20150821
  Serious: Yes (Other)
  Sender: FDA-Public Use
  Company Number: GB-ACTAVISPR-2015-09198

PATIENT
  Age: 60 Year
  Sex: Female

DRUGS (2)
  1. INDOMETACIN (UNKNOWN) [Suspect]
     Active Substance: INDOMETHACIN
     Indication: HEADACHE
     Dosage: 75 MG, TID
     Route: 065
     Dates: start: 2011
  2. INDOMETACIN (UNKNOWN) [Suspect]
     Active Substance: INDOMETHACIN
     Dosage: 50 MG, TID
     Route: 065
     Dates: start: 2011

REACTIONS (1)
  - Status migrainosus [Recovered/Resolved]
